FAERS Safety Report 9817712 (Version 1)
Quarter: 2013Q4

REPORT INFORMATION
  Report Type: Spontaneous
  Country: US (occurrence: None)
  Receive Date: 20131224
  Receipt Date: 20131224
  Transmission Date: 20140711
  Serious: Yes (Other)
  Sender: FDA-Public Use
  Company Number: PHHY2013US135486

PATIENT
  Sex: Female

DRUGS (13)
  1. GILENYA ( FINGOLIMOD) CAPSULE, 0.5 MG [Suspect]
     Route: 048
     Dates: start: 20120101, end: 20131113
  2. METFORMIN (METFORMIN) [Concomitant]
  3. DIAZEPAM (DIAZEPAM) [Concomitant]
  4. SYNTHROID ( LEVOTHYROXINE SODIUM) [Concomitant]
  5. ESTRADIOL ( ESTRADIOL) [Concomitant]
  6. PLAQUENIL ( HYDROXYCHLOROQUINE SULFATE) [Concomitant]
  7. VITAMIN D ( ERGOCALCIFEROL) [Concomitant]
  8. VITAMIN E ( TOCOPHEROL) [Concomitant]
  9. VITAMIN B12 ( CYANOCOBALAMIN) [Concomitant]
  10. CINNAMON ( CINNAMOMUM VERUM) [Concomitant]
  11. CIMETIDINE ( CIMETIDINE) [Concomitant]
  12. ANTIBIOTIC ( NEOMYCIN SULFATE, POLYMYXIN B SULFATE) [Concomitant]
  13. STEROID ( NO INGREDIENTS/SUBSTANCES) [Concomitant]

REACTIONS (2)
  - Platelet count decreased [None]
  - White blood cell count decreased [None]
